FAERS Safety Report 6727645-8 (Version None)
Quarter: 2010Q2

REPORT INFORMATION
  Report Type: 
  Country: None (occurrence: None)
  Receive Date: 20100517
  Receipt Date: 20100510
  Transmission Date: 20101027
  Serious: Yes (Disabling)
  Sender: FDA-Public Use
  Company Number: PHHO2010CA05744

PATIENT
  Sex: Male
  Weight: 89.9 kg

DRUGS (3)
  1. CERTICAN [Suspect]
     Indication: LIVER TRANSPLANT
     Dosage: 1.25 BQ, BID
     Route: 048
     Dates: start: 20091218, end: 20100318
  2. TACROLIMUS [Suspect]
     Indication: LIVER TRANSPLANT
     Dosage: 3 M, BID
     Route: 048
     Dates: start: 20091116
  3. PREDNISONE [Concomitant]
     Indication: LIVER TRANSPLANT
     Dosage: 15MG/DAY
     Route: 048
     Dates: start: 20091116, end: 20100318

REACTIONS (2)
  - CONCOMITANT DISEASE PROGRESSION [None]
  - HEPATITIS C [None]
